FAERS Safety Report 4366394-0 (Version None)
Quarter: 2004Q2

REPORT INFORMATION
  Report Type: 
  Country: None (occurrence: None)
  Receive Date: 20040524
  Receipt Date: 20040511
  Transmission Date: 20050107
  Serious: Yes (Other)
  Sender: FDA-Public Use
  Company Number: JACFRA2000000432

PATIENT
  Age: 29 Year
  Sex: Female

DRUGS (8)
  1. TOPIRAMATE [Suspect]
     Indication: EPILEPSY
     Dosage: 100 MG 2 IN 1 DAY ORAL; 50 MG ORAL
     Route: 048
     Dates: start: 19990825, end: 19990901
  2. TOPIRAMATE [Suspect]
     Indication: EPILEPSY
     Dosage: 100 MG 2 IN 1 DAY ORAL; 50 MG ORAL
     Route: 048
     Dates: start: 19990902
  3. DEPAKINE CHRONO (ERGENYL CHRONO) TABLETS [Suspect]
     Indication: EPILEPSY
     Dosage: SEE IMAGE
     Route: 048
     Dates: start: 19750101, end: 19991001
  4. DEPAKINE CHRONO (ERGENYL CHRONO) TABLETS [Suspect]
     Indication: EPILEPSY
     Dosage: SEE IMAGE
     Route: 048
     Dates: start: 19991001, end: 19991213
  5. DEPAKINE CHRONO (ERGENYL CHRONO) TABLETS [Suspect]
     Indication: EPILEPSY
     Dosage: SEE IMAGE
     Route: 048
     Dates: start: 19991214
  6. LAMICTAL [Concomitant]
  7. CLONAZEPAM [Concomitant]
  8. SABRIL (VIGABATRIN) [Concomitant]

REACTIONS (11)
  - AMINO ACID LEVEL INCREASED [None]
  - ANOREXIA [None]
  - ASTHENIA [None]
  - DRUG EFFECT DECREASED [None]
  - DRUG INTERACTION [None]
  - ELECTROENCEPHALOGRAM ABNORMAL [None]
  - ENCEPHALOPATHY [None]
  - FATIGUE [None]
  - HYPERAMMONAEMIA [None]
  - PROSTRATION [None]
  - SOMNOLENCE [None]
